FAERS Safety Report 4357410-0 (Version None)
Quarter: 2004Q2

REPORT INFORMATION
  Report Type: 
  Country: None (occurrence: None)
  Receive Date: 20040506
  Receipt Date: 20040422
  Transmission Date: 20050107
  Serious: Yes (Hospitalization)
  Sender: FDA-Public Use
  Company Number: ZICO000934

PATIENT
  Age: 58 Year
  Sex: Male
  Weight: 75.8 kg

DRUGS (1)
  1. ZICONOTIDE [Suspect]
     Indication: PAIN
     Dosage: 0.30 MCG/HR INTRATHECAL
     Route: 037
     Dates: start: 20030310, end: 20030403

REACTIONS (8)
  - CHEST DISCOMFORT [None]
  - DELUSION [None]
  - DYSGEUSIA [None]
  - DYSPHAGIA [None]
  - HEADACHE [None]
  - HYPONATRAEMIA [None]
  - SENSATION OF FOREIGN BODY [None]
  - URINARY TRACT INFECTION [None]
